FAERS Safety Report 6155886-X (Version None)
Quarter: 2009Q2

REPORT INFORMATION
  Report Type: 
  Country: None (occurrence: None)
  Receive Date: 20090415
  Receipt Date: 20090402
  Transmission Date: 20091009
  Serious: Yes (Other)
  Sender: FDA-Public Use
  Company Number: PHHY2009GB13866

PATIENT
  Sex: Male

DRUGS (2)
  1. CLOZARIL [Suspect]
     Indication: SCHIZOPHRENIA
     Dosage: UNK
     Dates: start: 20080610
  2. CLOZAPINE [Suspect]

REACTIONS (4)
  - EATING DISORDER [None]
  - GASTROINTESTINAL TUBE INSERTION [None]
  - SCHIZOPHRENIA [None]
  - WRONG TECHNIQUE IN DRUG USAGE PROCESS [None]
